FAERS Safety Report 7990143-8 (Version None)
Quarter: 2011Q4

REPORT INFORMATION
  Report Type: 
  Country: None (occurrence: None)
  Receive Date: 20111219
  Receipt Date: 20110309
  Transmission Date: 20120403
  Serious: No
  Sender: FDA-Public Use
  Company Number: US-ASTRAZENECA-2011SE07573

PATIENT
  Age: 64 Year
  Sex: Female
  Weight: 127 kg

DRUGS (5)
  1. CRESTOR [Suspect]
     Route: 048
  2. BENECAR [Concomitant]
     Indication: HYPERTENSION
  3. NEXIUM [Concomitant]
     Indication: GASTRIC DISORDER
  4. ZOLOFT [Concomitant]
     Indication: DEPRESSION
  5. TOPROL-XL [Concomitant]
     Indication: HYPERTENSION

REACTIONS (2)
  - NASOPHARYNGITIS [None]
  - PRODUCTIVE COUGH [None]
